FAERS Safety Report 5264286-6 (Version None)
Quarter: 2007Q1

REPORT INFORMATION
  Report Type: 
  Country: None (occurrence: None)
  Receive Date: 20070309
  Receipt Date: 20070221
  Transmission Date: 20070707
  Serious: Yes (Hospitalization, Other)
  Sender: FDA-Public Use
  Company Number: 2007BL000571

PATIENT
  Age: 40 Year
  Sex: Female
  Weight: 58 kg

DRUGS (10)
  1. PREDNISOLONE SODIUM PHOSPHATE [Suspect]
  2. METHOTREXATE [Suspect]
  3. REMICADE [Suspect]
     Indication: RHEUMATOID ARTHRITIS
     Dosage: 174 MILLIGRAMS; INTRAVENOUS
     Route: 042
     Dates: start: 20030225, end: 20060207
  4. ADCAL-D3 [Concomitant]
  5. FOLIC ACID [Concomitant]
  6. ACETAMINOPHEN [Concomitant]
  7. RISEDRONATE SODIUM [Concomitant]
  8. SANDOCAL 1000 [Concomitant]
  9. SULFASALAZINE [Concomitant]
  10. VOLTAREN [Concomitant]

REACTIONS (6)
  - BETA HAEMOLYTIC STREPTOCOCCAL INFECTION [None]
  - BRAIN ABSCESS [None]
  - CEREBRAL INFARCTION [None]
  - INTERVERTEBRAL DISCITIS [None]
  - PSOAS ABSCESS [None]
  - SEPSIS [None]
